FAERS Safety Report 11951198 (Version 1)
Quarter: 2016Q1

REPORT INFORMATION
  Report Type: Spontaneous
  Country: US (occurrence: US)
  Receive Date: 20160125
  Receipt Date: 20160125
  Transmission Date: 20160526
  Serious: No
  Sender: FDA-Public Use
  Company Number: US-VIIV HEALTHCARE LIMITED-US2016008369

PATIENT
  Sex: Male

DRUGS (2)
  1. MELATONIN [Suspect]
     Active Substance: MELATONIN
     Indication: INSOMNIA
  2. TRIUMEQ [Suspect]
     Active Substance: ABACAVIR SULFATE\DOLUTEGRAVIR SODIUM\LAMIVUDINE
     Indication: PRODUCT USED FOR UNKNOWN INDICATION
     Dates: end: 20160115

REACTIONS (2)
  - Drug ineffective [Unknown]
  - Insomnia [Unknown]
